FAERS Safety Report 4984592-X (Version None)
Quarter: 2006Q2

REPORT INFORMATION
  Report Type: 
  Country: None (occurrence: None)
  Receive Date: 20060426
  Receipt Date: 20060426
  Transmission Date: 20061013
  Serious: Yes (Hospitalization)
  Sender: FDA-Public Use
  Company Number: None

PATIENT
  Age: 62 Year
  Sex: Male
  Weight: 153.7694 kg

DRUGS (3)
  1. DILTIAZEM [Suspect]
     Indication: HYPERTENSION
  2. ENALAPRIL 5 MG BID 1/05-03/2/06 [Suspect]
     Indication: HYPERTENSION
  3. FUROSEMIDE [Suspect]
     Indication: CARDIAC FAILURE CONGESTIVE
     Dates: start: 20040330, end: 20060302

REACTIONS (2)
  - FALL [None]
  - HYPOTENSION [None]
